FAERS Safety Report 8605548-1 (Version None)
Quarter: 2012Q3

REPORT INFORMATION
  Report Type: 
  Country: None (occurrence: None)
  Receive Date: 20120820
  Receipt Date: 20120815
  Transmission Date: 20120928
  Serious: Yes (Other)
  Sender: FDA-Public Use
  Company Number: BR-PFIZER INC-2012153148

PATIENT
  Sex: Female

DRUGS (2)
  1. DOSTINEX [Suspect]
     Indication: HYPERPROLACTINAEMIA
     Dosage: 1 TABLET PER WEEK
     Route: 048
     Dates: start: 20111001
  2. DOSTINEX [Suspect]
     Indication: PITUITARY TUMOUR BENIGN

REACTIONS (7)
  - NAUSEA [None]
  - HEADACHE [None]
  - BACK PAIN [None]
  - POLYURIA [None]
  - VERTIGO [None]
  - HAEMOGLOBIN URINE [None]
  - FATIGUE [None]
